FAERS Safety Report 16563671 (Version 1)
Quarter: 2019Q3

REPORT INFORMATION
  Report Type: Spontaneous
  Country: US (occurrence: US)
  Receive Date: 20190712
  Receipt Date: 20190712
  Transmission Date: 20191004
  Serious: Yes (Other)
  Sender: FDA-Public Use
  Company Number: US-LUPIN PHARMACEUTICALS INC.-2019-04234

PATIENT
  Sex: Female

DRUGS (1)
  1. POLYETHYLENE GLYCOL 3350 POWDER [Suspect]
     Active Substance: POLYETHYLENE GLYCOL 3350
     Indication: PRODUCT USED FOR UNKNOWN INDICATION
     Dosage: UNK
     Route: 065
     Dates: start: 20190502, end: 20190626

REACTIONS (15)
  - Large intestinal haemorrhage [Recovered/Resolved]
  - Hyperhidrosis [Recovered/Resolved]
  - Malaise [Not Recovered/Not Resolved]
  - Fear of disease [Not Recovered/Not Resolved]
  - Product odour abnormal [Unknown]
  - Product taste abnormal [Unknown]
  - Menorrhagia [Not Recovered/Not Resolved]
  - Colitis [Not Recovered/Not Resolved]
  - Visual impairment [Recovered/Resolved]
  - Palpitations [Not Recovered/Not Resolved]
  - Vomiting [Unknown]
  - Food craving [Not Recovered/Not Resolved]
  - Polymenorrhoea [Unknown]
  - Mydriasis [Not Recovered/Not Resolved]
  - Nervousness [Not Recovered/Not Resolved]

NARRATIVE: CASE EVENT DATE: 20190502
